FAERS Safety Report 20842891 (Version 1)
Quarter: 2022Q2

REPORT INFORMATION
  Report Type: Spontaneous
  Country: US (occurrence: US)
  Receive Date: 20220518
  Receipt Date: 20220518
  Transmission Date: 20220721
  Serious: Yes (Death, Other)
  Sender: FDA-Public Use
  Company Number: US-SA-SAC20220511000213

PATIENT
  Age: 93 Year
  Sex: Male

DRUGS (1)
  1. DUPIXENT [Suspect]
     Active Substance: DUPILUMAB
     Indication: Psoriasis
     Dosage: 1 DF, QOW
     Route: 058
     Dates: start: 20211207, end: 20211217

REACTIONS (2)
  - Death [Fatal]
  - Product use in unapproved indication [Unknown]
